FAERS Safety Report 21985712 (Version 1)
Quarter: 2023Q1

REPORT INFORMATION
  Report Type: Spontaneous
  Country: BR (occurrence: BR)
  Receive Date: 20230213
  Receipt Date: 20230213
  Transmission Date: 20230417
  Serious: Yes (Other)
  Sender: FDA-Public Use
  Company Number: BR-002147023-NVSC2020BR239273

PATIENT
  Age: 25 Year
  Sex: Female
  Weight: 60.2 kg

DRUGS (3)
  1. AMLODIPINE BESYLATE [Suspect]
     Active Substance: AMLODIPINE BESYLATE
     Indication: Hypertension
     Dosage: UNK, TID (STARTED TO BE ADMINISTERED IN THE FIRST WEEK 10 MG PER DAY, EVERY 12 HOURS AND IN THE SECO
     Route: 048
     Dates: start: 20200615, end: 20200630
  2. VITAMINS [Concomitant]
     Active Substance: VITAMINS
     Indication: Vitamin supplementation
     Dosage: UNK, QD
     Route: 048
     Dates: start: 201912, end: 20200630
  3. VITAMINS [Concomitant]
     Active Substance: VITAMINS
     Dosage: UNK, QD
     Route: 048
     Dates: start: 20191212, end: 20200629

REACTIONS (6)
  - Peripheral swelling [Recovered/Resolved]
  - Heart rate increased [Recovered/Resolved]
  - Uterine contractions abnormal [Recovered/Resolved]
  - Dyspnoea [Recovered/Resolved]
  - Paraesthesia [Recovered/Resolved]
  - Maternal exposure during pregnancy [Unknown]

NARRATIVE: CASE EVENT DATE: 20200615
